FAERS Safety Report 19156952 (Version 1)
Quarter: 2021Q2

REPORT INFORMATION
  Report Type: Spontaneous
  Country: US (occurrence: US)
  Receive Date: 20210420
  Receipt Date: 20210420
  Transmission Date: 20210717
  Serious: No
  Sender: FDA-Public Use
  Company Number: US-SA-2021SA125191

PATIENT
  Age: 63 Year
  Sex: Male

DRUGS (21)
  1. CETRIZINE [Concomitant]
     Active Substance: CETIRIZINE HYDROCHLORIDE
  2. XARELTO [Concomitant]
     Active Substance: RIVAROXABAN
  3. OMEPRAZOLE. [Concomitant]
     Active Substance: OMEPRAZOLE
  4. ALBUTEROL [SALBUTAMOL SULFATE] [Concomitant]
     Active Substance: ALBUTEROL SULFATE
  5. FOLIC ACID. [Concomitant]
     Active Substance: FOLIC ACID
  6. HYDROCHLOROTH [Concomitant]
     Active Substance: HYDROCHLOROTHIAZIDE
  7. METFORMIN HYDROCHLORIDE. [Concomitant]
     Active Substance: METFORMIN HYDROCHLORIDE
  8. METHOTREXATE. [Concomitant]
     Active Substance: METHOTREXATE
  9. PREDNISONE. [Concomitant]
     Active Substance: PREDNISONE
  10. WIXELA INHUB [Concomitant]
     Active Substance: FLUTICASONE PROPIONATE\SALMETEROL XINAFOATE
     Dosage: 250?50 MC
  11. OXYCODONE?ACET [Concomitant]
     Active Substance: ACETAMINOPHEN\OXYCODONE HYDROCHLORIDE
  12. DILTIAZEM. [Concomitant]
     Active Substance: DILTIAZEM
  13. FUROSEMIDE. [Concomitant]
     Active Substance: FUROSEMIDE
  14. GABAPENTIN. [Concomitant]
     Active Substance: GABAPENTIN
  15. LIDOCAINE. [Concomitant]
     Active Substance: LIDOCAINE
  16. TRIAMCINOLON [TRIAMCINOLONE] [Concomitant]
     Active Substance: TRIAMCINOLONE
  17. DUPIXENT [Suspect]
     Active Substance: DUPILUMAB
     Indication: PRODUCT USED FOR UNKNOWN INDICATION
     Dosage: 300 MG, QOW
     Route: 058
     Dates: start: 2020
  18. ATORVASTATIN [ATORVASTATIN CALCIUM] [Concomitant]
     Active Substance: ATORVASTATIN CALCIUM
  19. TAMSULOSIN [Concomitant]
     Active Substance: TAMSULOSIN
  20. DICLOFENAC SODIUM. [Concomitant]
     Active Substance: DICLOFENAC SODIUM
  21. SYMBICORT [Concomitant]
     Active Substance: BUDESONIDE\FORMOTEROL FUMARATE DIHYDRATE
     Dosage: UNK

REACTIONS (2)
  - Injection site pain [Not Recovered/Not Resolved]
  - Product preparation error [Not Recovered/Not Resolved]
